FAERS Safety Report 18909036 (Version 1)
Quarter: 2021Q1

REPORT INFORMATION
  Report Type: Other
  Country: US (occurrence: US)
  Receive Date: 20210218
  Receipt Date: 20210218
  Transmission Date: 20210420
  Serious: Yes (Other)
  Sender: FDA-Public Use
  Company Number: US-ROCHE-2771125

PATIENT
  Sex: Male
  Weight: 118.04 kg

DRUGS (1)
  1. OCREVUS [Suspect]
     Active Substance: OCRELIZUMAB
     Indication: MULTIPLE SCLEROSIS
     Dosage: ONGOING?YES
     Route: 065

REACTIONS (2)
  - Blood test abnormal [Unknown]
  - Urinary tract infection [Recovered/Resolved]
